FAERS Safety Report 15408935 (Version 2)
Quarter: 2018Q4

REPORT INFORMATION
  Report Type: Spontaneous
  Country: CH (occurrence: CH)
  Receive Date: 20180920
  Receipt Date: 20181008
  Transmission Date: 20190204
  Serious: Yes (Hospitalization, Other)
  Sender: FDA-Public Use
  Company Number: CH-009507513-1809CHE004270

PATIENT
  Sex: Male
  Weight: 89 kg

DRUGS (6)
  1. BRIDION [Suspect]
     Active Substance: SUGAMMADEX
     Indication: NEUROMUSCULAR BLOCKADE REVERSAL
     Dosage: 200 MG (1200 MG IN TOTAL), UNK
     Dates: start: 20180416, end: 20180416
  2. PROPOFOL. [Concomitant]
     Active Substance: PROPOFOL
     Indication: MAINTENANCE OF ANAESTHESIA
     Dosage: 190 MG, ONCE
     Dates: start: 20180416, end: 20180416
  3. ESMERON [Concomitant]
     Active Substance: ROCURONIUM BROMIDE
     Indication: INDUCTION OF ANAESTHESIA
     Dosage: 35 MG, ONCE
     Dates: start: 20180416, end: 20180416
  4. FENTANYL. [Concomitant]
     Active Substance: FENTANYL
     Indication: INDUCTION OF ANAESTHESIA
     Dosage: 150 MICROGRAM, ONCE
     Dates: start: 20180416
  5. REMIFENTANIL HYDROCHLORIDE. [Concomitant]
     Active Substance: REMIFENTANIL HYDROCHLORIDE
     Indication: MAINTENANCE OF ANAESTHESIA
     Dosage: UNK
     Dates: start: 20180416, end: 20180416
  6. EPHEDRINE. [Concomitant]
     Active Substance: EPHEDRINE
     Indication: PROPHYLAXIS
     Dosage: 20 MG, UNK
     Dates: start: 20180416

REACTIONS (1)
  - Drug ineffective [Recovered/Resolved with Sequelae]

NARRATIVE: CASE EVENT DATE: 20180416
